FAERS Safety Report 4626861-9 (Version None)
Quarter: 2005Q2

REPORT INFORMATION
  Report Type: 
  Country: None (occurrence: None)
  Receive Date: 20050405
  Receipt Date: 20021115
  Transmission Date: 20051028
  Serious: Yes (Death, Hospitalization, Other)
  Sender: FDA-Public Use
  Company Number: US-AMGEN-US023575

PATIENT
  Sex: Female
  Weight: 64 kg

DRUGS (15)
  1. EPOGEN [Suspect]
     Indication: DIALYSIS
     Route: 042
     Dates: start: 20000424, end: 20021112
  2. QUININE SULFATE [Concomitant]
     Dates: start: 20020729
  3. FOLIC ACID [Concomitant]
     Route: 048
     Dates: start: 20000424
  4. ASPIRIN [Concomitant]
     Route: 048
     Dates: start: 20020729
  5. NORVASC [Concomitant]
     Route: 048
     Dates: start: 20020729
  6. IMDUR [Concomitant]
     Route: 048
     Dates: start: 20020729
  7. NEPHRO-CAPS [Concomitant]
     Dates: start: 20000424
  8. RENAGEL [Concomitant]
     Route: 048
     Dates: start: 20020729
  9. VANCOMYCIN [Concomitant]
     Dates: start: 20020617, end: 20020901
  10. LOPRESSOR [Concomitant]
  11. ZANTAC [Concomitant]
  12. MEGACE [Concomitant]
     Dates: start: 20020906
  13. PLAVIX [Concomitant]
     Route: 048
     Dates: start: 20020718, end: 20021112
  14. FERRLECIT FOR INJECTION [Concomitant]
     Dates: end: 20020821
  15. TYLOX [Concomitant]
     Route: 048

REACTIONS (4)
  - APLASIA PURE RED CELL [None]
  - DEATH [None]
  - OSTEOMYELITIS [None]
  - STAPHYLOCOCCAL BACTERAEMIA [None]
